FAERS Safety Report 11325447 (Version 1)
Quarter: 2015Q3

REPORT INFORMATION
  Report Type: Report from Study
  Country: US (occurrence: US)
  Receive Date: 20150730
  Receipt Date: 20150730
  Transmission Date: 20151125
  Serious: Yes (Hospitalization, Other)
  Sender: FDA-Public Use
  Company Number: US-JNJFOC-20150721918

PATIENT
  Age: 83 Year
  Sex: Male
  Weight: 57 kg

DRUGS (11)
  1. IMBRUVICA [Suspect]
     Active Substance: IBRUTINIB
     Indication: WALDENSTROM^S MACROGLOBULINAEMIA
     Route: 048
     Dates: start: 201505, end: 20150708
  2. CILOSTAZOL. [Concomitant]
     Active Substance: CILOSTAZOL
  3. ATENOLOL. [Concomitant]
     Active Substance: ATENOLOL
  4. MAGNESIUM [Concomitant]
     Active Substance: MAGNESIUM
  5. DONEPEZIL. [Concomitant]
     Active Substance: DONEPEZIL
  6. VITAMIN B6 [Concomitant]
     Active Substance: PYRIDOXINE HYDROCHLORIDE
  7. TAMSULOSIN [Concomitant]
     Active Substance: TAMSULOSIN
  8. FERROUS SULFATE [Concomitant]
     Active Substance: FERROUS SULFATE\FERROUS SULFATE, DRIED
  9. THERAGRAN [Concomitant]
     Active Substance: VITAMINS
  10. ASPIRIN. [Concomitant]
     Active Substance: ASPIRIN
  11. SIMVASTATIN. [Concomitant]
     Active Substance: SIMVASTATIN

REACTIONS (6)
  - Anaemia [Recovering/Resolving]
  - Hiatus hernia [Recovering/Resolving]
  - Urinary tract infection [Recovering/Resolving]
  - Haematochezia [Recovering/Resolving]
  - Gastric haemorrhage [Recovering/Resolving]
  - Oesophageal haemorrhage [Recovering/Resolving]

NARRATIVE: CASE EVENT DATE: 201507
